FAERS Safety Report 6051919-X (Version None)
Quarter: 2009Q1

REPORT INFORMATION
  Report Type: 
  Country: None (occurrence: None)
  Receive Date: 20090126
  Receipt Date: 20090114
  Transmission Date: 20090719
  Serious: No
  Sender: FDA-Public Use
  Company Number: BR-ASTRAZENECA-2009UW01356

PATIENT
  Age: 47 Year
  Sex: Male
  Weight: 80 kg

DRUGS (3)
  1. NEXIUM [Suspect]
     Indication: GASTRITIS EROSIVE
     Route: 048
     Dates: start: 20081223
  2. BROMOPRIDE [Concomitant]
     Indication: GASTRITIS EROSIVE
  3. LUFTAL [Concomitant]
     Indication: FLATULENCE

REACTIONS (2)
  - ABDOMINAL PAIN UPPER [None]
  - PAIN IN EXTREMITY [None]
